FAERS Safety Report 7906928-X (Version None)
Quarter: 2011Q4

REPORT INFORMATION
  Report Type: 
  Country: None (occurrence: None)
  Receive Date: 20111110
  Receipt Date: 20111013
  Transmission Date: 20120403
  Serious: Yes (Hospitalization)
  Sender: FDA-Public Use
  Company Number: JP-PFIZER INC-2011243102

PATIENT
  Age: 76 Year
  Sex: Female
  Weight: 67 kg

DRUGS (11)
  1. NORVASC [Concomitant]
     Indication: HYPERTENSION
     Dosage: 5 MG, 1X/DAY
     Route: 048
     Dates: start: 20100501, end: 20110825
  2. ETODOLAC [Concomitant]
     Indication: BACK PAIN
     Dosage: 100 MG, 1X/DAY
     Route: 048
     Dates: end: 20110825
  3. LASIX [Concomitant]
     Dosage: 40 MG, 2X/DAY
     Route: 048
     Dates: start: 20110801, end: 20110825
  4. ASTOMIN [Concomitant]
     Dosage: UNK
     Route: 048
     Dates: start: 20110725, end: 20110801
  5. MUCODYNE [Concomitant]
     Dosage: UNK
     Dates: start: 20110725, end: 20110801
  6. HOKUNALIN [Concomitant]
     Dosage: UNK
     Route: 062
     Dates: start: 20110725, end: 20110801
  7. ALFAROL [Concomitant]
     Indication: OSTEOPOROSIS
     Dosage: 1 MG, 2X/DAY
     Route: 048
     Dates: end: 20110825
  8. ALENDRONATE SODIUM [Concomitant]
     Indication: OSTEOPOROSIS
     Dosage: 35 MG, WEEKLY
     Route: 048
     Dates: end: 20110825
  9. ALDACTONE [Suspect]
     Indication: HYPERTENSION
     Dosage: 25 MG, 1X/DAY
     Route: 048
     Dates: start: 20110811, end: 20110825
  10. LASIX [Concomitant]
     Indication: CARDIAC FAILURE CONGESTIVE
     Dosage: 20 MG, 2X/DAY
     Route: 048
     Dates: start: 20110301, end: 20110801
  11. LAC B [Concomitant]
     Indication: CONSTIPATION
     Dosage: 3 G, 3X/DAY
     Route: 048
     Dates: start: 20110402, end: 20110825

REACTIONS (1)
  - STEVENS-JOHNSON SYNDROME [None]
